FAERS Safety Report 15370712 (Version 1)
Quarter: 2018Q3

REPORT INFORMATION
  Report Type: Spontaneous
  Country: US (occurrence: US)
  Receive Date: 20180905
  Receipt Date: 20180905
  Transmission Date: 20181010
  Serious: Yes (Hospitalization)
  Sender: FDA-Public Use
  Company Number: None

PATIENT
  Age: 73 Year
  Sex: Male
  Weight: 82.9 kg

DRUGS (2)
  1. DIVALPROEX [Suspect]
     Active Substance: DIVALPROEX SODIUM
     Indication: BIPOLAR DISORDER
     Route: 048
     Dates: start: 20180223, end: 20180817
  2. DIVALPROEX [Suspect]
     Active Substance: DIVALPROEX SODIUM
     Indication: MANIA
     Route: 048
     Dates: start: 20180223, end: 20180817

REACTIONS (10)
  - Tremor [None]
  - Asterixis [None]
  - Fall [None]
  - Muscular weakness [None]
  - Fatigue [None]
  - Hyperammonaemia [None]
  - Thrombocytopenia [None]
  - Parkinsonism [None]
  - Gait disturbance [None]
  - Mental status changes [None]

NARRATIVE: CASE EVENT DATE: 20180827
